FAERS Safety Report 9810943 (Version 2)
Quarter: 2014Q4

REPORT INFORMATION
  Report Type: Spontaneous
  Country: US (occurrence: US)
  Receive Date: 20140110
  Receipt Date: 20141218
  Transmission Date: 20150529
  Serious: Yes (Hospitalization, Disabling, Other)
  Sender: FDA-Public Use
  Company Number: US-SANOFI-AVENTIS-2013SA021904

PATIENT
  Age: 50 Year
  Sex: Male

DRUGS (17)
  1. PLAVIX [Suspect]
     Active Substance: CLOPIDOGREL BISULFATE
     Indication: ACUTE CORONARY SYNDROME
     Dosage: PLAVIX WAS PRESCRIBED ON OR ABOUT 14-FEB-2006?AND CONTINUED ON PLAVIX UNTIL ON OR ABOUT 14-JAN-2011
     Route: 065
     Dates: start: 20031203, end: 20110306
  2. AMIODARONE [Concomitant]
     Active Substance: AMIODARONE
     Indication: ARRHYTHMIA
     Route: 048
  3. FISH OIL [Concomitant]
     Active Substance: FISH OIL
     Dosage: 1,200-144-216MG
     Route: 048
  4. ZETIA [Concomitant]
     Active Substance: EZETIMIBE
     Route: 048
  5. FOLIC ACID. [Concomitant]
     Active Substance: FOLIC ACID
     Route: 048
  6. HUMALOG [Concomitant]
     Active Substance: INSULIN LISPRO
     Dosage: SUBCUTANEOUS SOLUTION 100UNIT/ML
     Route: 058
  7. TRIMIX [Concomitant]
     Active Substance: ALPROSTADIL\PAPAVERINE\PHENTOLAMINE
     Dosage: 30MG-1MG-10MCG
     Route: 030
  8. PLAVIX [Suspect]
     Active Substance: CLOPIDOGREL BISULFATE
     Indication: STENT PLACEMENT
     Dosage: PLAVIX WAS PRESCRIBED ON OR ABOUT 14-FEB-2006?AND CONTINUED ON PLAVIX UNTIL ON OR ABOUT 14-JAN-2011
     Route: 065
     Dates: start: 20031203, end: 20110306
  9. FLAXSEED [Concomitant]
     Active Substance: FLAX SEED
     Route: 048
  10. LISINOPRIL. [Concomitant]
     Active Substance: LISINOPRIL
  11. CARVEDILOL. [Concomitant]
     Active Substance: CARVEDILOL
     Route: 048
  12. LANTUS [Concomitant]
     Active Substance: INSULIN GLARGINE
     Dosage: SUBCUTANEOUS SOLUTION 100UNIT/ML
     Route: 058
  13. TESTOSTERONE. [Concomitant]
     Active Substance: TESTOSTERONE
     Dosage: INTRAMUSCULAR OIL DOSE:200 MILLIGRAM(S)/MILLILITRE
  14. PLAVIX [Suspect]
     Active Substance: CLOPIDOGREL BISULFATE
     Indication: MYOCARDIAL INFARCTION
     Dosage: PLAVIX WAS PRESCRIBED ON OR ABOUT 14-FEB-2006?AND CONTINUED ON PLAVIX UNTIL ON OR ABOUT 14-JAN-2011
     Route: 065
     Dates: start: 20031203, end: 20110306
  15. ASPIRIN. [Concomitant]
     Active Substance: ASPIRIN
     Dates: start: 20031203, end: 20110306
  16. SEPTRA [Concomitant]
     Active Substance: SULFAMETHOXAZOLE\TRIMETHOPRIM
     Route: 042
  17. FLUTICASONE [Concomitant]
     Active Substance: FLUTICASONE\FLUTICASONE PROPIONATE
     Dosage: NASAL SPRAY

REACTIONS (4)
  - Hemiplegia [Unknown]
  - Gastrointestinal haemorrhage [Unknown]
  - Blindness [Unknown]
  - Cerebral haemorrhage [Unknown]

NARRATIVE: CASE EVENT DATE: 20110306
